FAERS Safety Report 7502498-9 (Version None)
Quarter: 2011Q2

REPORT INFORMATION
  Report Type: 
  Country: None (occurrence: None)
  Receive Date: 20110517
  Receipt Date: 20110504
  Transmission Date: 20111010
  Serious: Yes (Other)
  Sender: FDA-Public Use
  Company Number: AXC-2010-000224

PATIENT
  Age: 22 Year
  Sex: Female
  Weight: 58 kg

DRUGS (6)
  1. CIPRO [Suspect]
     Indication: URINARY TRACT INFECTION
     Dates: start: 20100624, end: 20100701
  2. CARAFATE [Suspect]
     Indication: DYSPEPSIA
     Dates: start: 20100627, end: 20100704
  3. DEXILANT [Suspect]
     Indication: GASTROOESOPHAGEAL REFLUX DISEASE
     Dates: start: 20100101, end: 20100604
  4. SINGULAIR [Suspect]
     Indication: ASTHMA
     Dates: start: 20100625
  5. REBIF [Suspect]
     Indication: MULTIPLE SCLEROSIS
     Dosage: 44 G, 3 TIMES/WEEK, SUBCUTANEOUS
     Route: 058
     Dates: start: 20100519, end: 20100614
  6. NEXIUM [Suspect]
     Indication: DYSPEPSIA
     Dates: start: 20100604, end: 20100702

REACTIONS (7)
  - ASPARTATE AMINOTRANSFERASE INCREASED [None]
  - LIVER INJURY [None]
  - AMENORRHOEA [None]
  - ALANINE AMINOTRANSFERASE INCREASED [None]
  - DRUG INEFFECTIVE [None]
  - URINARY TRACT INFECTION [None]
  - LIVER FUNCTION TEST ABNORMAL [None]
